FAERS Safety Report 5279023-9 (Version None)
Quarter: 2007Q1

REPORT INFORMATION
  Report Type: 
  Country: None (occurrence: None)
  Receive Date: 20070328
  Receipt Date: 20070122
  Transmission Date: 20070707
  Serious: No
  Sender: FDA-Public Use
  Company Number: US-AMGEN-US207809

PATIENT
  Sex: Female

DRUGS (5)
  1. NEULASTA [Suspect]
     Route: 065
     Dates: start: 20061001
  2. CARBOPLATIN [Concomitant]
     Route: 065
     Dates: start: 20060901
  3. COUMADIN [Concomitant]
     Route: 065
  4. TOPROL-XL [Concomitant]
     Route: 065
  5. ZESTRIL [Concomitant]
     Route: 065

REACTIONS (3)
  - BONE PAIN [None]
  - FATIGUE [None]
  - HYPOAESTHESIA [None]
